FAERS Safety Report 9116722 (Version 2)
Quarter: 2013Q1

REPORT INFORMATION
  Report Type: Spontaneous
  Country: HU (occurrence: HU)
  Receive Date: 20130225
  Receipt Date: 20130311
  Transmission Date: 20140127
  Serious: Yes (Other)
  Sender: FDA-Public Use
  Company Number: HU-NOVOPROD-371066

PATIENT
  Age: 50 Year
  Sex: Female
  Weight: 124 kg

DRUGS (10)
  1. VICTOZA [Suspect]
     Indication: TYPE 2 DIABETES MELLITUS
     Dosage: 1.2 MG, QD
     Route: 065
     Dates: start: 20121128
  2. VALSACOR [Concomitant]
     Indication: HYPERTONIA
     Dosage: 80 MG/OS
     Dates: start: 20110711
  3. FURON                              /00032601/ [Concomitant]
     Indication: CARDIAC FAILURE
     Dosage: 40 MG, UNK
     Dates: start: 20110711
  4. NEBIVOLOL [Concomitant]
     Indication: HYPERTONIA
     Dosage: 5 MG, UNK
     Dates: start: 20110711
  5. SPIRON                             /00006201/ [Concomitant]
     Indication: CARDIAC FAILURE
     Dosage: 100 MG, UNK
     Dates: start: 20110711
  6. BRINALDIX [Concomitant]
     Indication: CARDIAC FAILURE
     Dosage: 10 MG, UNK
     Dates: start: 20110711
  7. KALDYUM [Concomitant]
     Indication: CARDIAC FAILURE
     Dosage: 600 MG, UNK
     Dates: start: 20110711
  8. MAGNESIUM [Concomitant]
     Indication: CARDIAC FAILURE
     Dosage: 1000 MG, UNK
     Dates: start: 20110711
  9. PANTOPRAZOL [Concomitant]
     Indication: GASTROOESOPHAGEAL REFLUX DISEASE
     Dosage: 20 MG, UNK
     Dates: start: 20110711
  10. MEFORAL                            /00082701/ [Concomitant]
     Indication: TYPE 2 DIABETES MELLITUS
     Dosage: 2000 MG, UNK
     Dates: start: 2006

REACTIONS (1)
  - Cerebellopontine angle tumour [Not Recovered/Not Resolved]
